FAERS Safety Report 13478234 (Version 1)
Quarter: 2017Q2

REPORT INFORMATION
  Report Type: Not Available
  Country: AU (occurrence: AU)
  Receive Date: 20170425
  Receipt Date: 20170425
  Transmission Date: 20170830
  Serious: Yes (Congenital Anomaly)
  Sender: FDA-Public Use
  Company Number: AU-ANIPHARMA-2017-AU-000006

PATIENT
  Sex: Female
  Weight: 2.6 kg

DRUGS (4)
  1. ALPRAZOLAM (NON-SPECIFIC) [Suspect]
     Active Substance: ALPRAZOLAM
     Route: 015
  2. PIMOZIDE. [Suspect]
     Active Substance: PIMOZIDE
     Route: 015
  3. TRANYLCYPROMINE [Suspect]
     Active Substance: TRANYLCYPROMINE
     Route: 015
  4. DIAZEPAM. [Suspect]
     Active Substance: DIAZEPAM
     Route: 015

REACTIONS (8)
  - Dysmorphism [Recovered/Resolved with Sequelae]
  - Craniosynostosis [Recovered/Resolved with Sequelae]
  - Exposure during breast feeding [Unknown]
  - Hydrocephalus [Unknown]
  - Necrotising colitis [Unknown]
  - Atrioventricular septal defect [Recovered/Resolved with Sequelae]
  - Respiratory distress [Unknown]
  - Congenital central nervous system anomaly [Recovered/Resolved with Sequelae]
